FAERS Safety Report 5718312-8 (Version None)
Quarter: 2008Q2

REPORT INFORMATION
  Report Type: 
  Country: None (occurrence: None)
  Receive Date: 20080425
  Receipt Date: 20080424
  Transmission Date: 20081010
  Serious: Yes (Death, Other)
  Sender: FDA-Public Use
  Company Number: MX-GILEAD-2008-0015794

PATIENT
  Sex: Male

DRUGS (5)
  1. HEPSERA [Suspect]
     Indication: HEPATITIS B
     Route: 048
     Dates: start: 20071012, end: 20080305
  2. HEPSERA [Suspect]
     Route: 048
     Dates: start: 20080327, end: 20080413
  3. ENALAPRIL MALEATE [Concomitant]
     Dates: start: 20071123
  4. OMEPRAZOLE [Concomitant]
     Dates: start: 20080129
  5. COLCHICINE [Concomitant]
     Dates: start: 20080129

REACTIONS (2)
  - HEPATIC CIRRHOSIS [None]
  - HEPATIC ENCEPHALOPATHY [None]
